FAERS Safety Report 5802334-2 (Version None)
Quarter: 2008Q3

REPORT INFORMATION
  Report Type: 
  Country: None (occurrence: None)
  Receive Date: 20080707
  Receipt Date: 20080618
  Transmission Date: 20090109
  Serious: No
  Sender: FDA-Public Use
  Company Number: US-BOEHRINGER INGELHEIM GMBH, GERMANY-2008-BP-08675BP

PATIENT
  Sex: Female
  Weight: 113 kg

DRUGS (6)
  1. SPIRIVA [Suspect]
     Indication: DYSPNOEA
     Route: 055
     Dates: start: 20080520
  2. ADVAIR DISKUS 100/50 [Concomitant]
  3. DITROPAN [Concomitant]
  4. SINGULAIR [Concomitant]
  5. COMBIVENT [Concomitant]
  6. CAPSACIMOL [Concomitant]
     Dates: start: 20070423

REACTIONS (2)
  - DRUG INEFFECTIVE [None]
  - FURUNCLE [None]
